FAERS Safety Report 5131717-1 (Version None)
Quarter: 2006Q4

REPORT INFORMATION
  Report Type: 
  Country: None (occurrence: None)
  Receive Date: 20061016
  Receipt Date: 20060927
  Transmission Date: 20070319
  Serious: Yes (Other)
  Sender: FDA-Public Use
  Company Number: 30260

PATIENT
  Sex: Male

DRUGS (2)
  1. FLECAINIDE ACETATE [Suspect]
     Route: 048
  2. CORDARONE [Suspect]
     Route: 048
     Dates: end: 20060901

REACTIONS (1)
  - INTERSTITIAL LUNG DISEASE [None]
